FAERS Safety Report 7299756-2 (Version None)
Quarter: 2011Q1

REPORT INFORMATION
  Report Type: 
  Country: None (occurrence: None)
  Receive Date: 20110217
  Receipt Date: 20110211
  Transmission Date: 20110831
  Serious: Yes (Other)
  Sender: FDA-Public Use
  Company Number: US-PFIZER INC-2011031521

PATIENT
  Sex: Female
  Weight: 76.19 kg

DRUGS (2)
  1. WELLBUTRIN SR [Concomitant]
     Dosage: UNK
  2. LYRICA [Suspect]
     Indication: FIBROMYALGIA
     Dosage: 75 MG, 2X/DAY
     Route: 048
     Dates: start: 20110101

REACTIONS (3)
  - VISION BLURRED [None]
  - DYSPHAGIA [None]
  - READING DISORDER [None]
